FAERS Safety Report 17981791 (Version 2)
Quarter: 2020Q3

REPORT INFORMATION
  Report Type: Spontaneous
  Country: FR (occurrence: FR)
  Receive Date: 20200706
  Receipt Date: 20200821
  Transmission Date: 20201103
  Serious: Yes (Hospitalization, Other)
  Sender: FDA-Public Use
  Company Number: FR-SA-2020SA169932

PATIENT

DRUGS (17)
  1. MORPHINE HYDROCHLORIDE [Suspect]
     Active Substance: MORPHINE HYDROCHLORIDE
     Indication: PAIN
     Dosage: 3 MG, QD
     Route: 042
     Dates: start: 20200413, end: 20200515
  2. FENTANYL. [Suspect]
     Active Substance: FENTANYL
     Indication: PAIN
     Dosage: 1 DF (72 HOUR)
     Route: 062
     Dates: start: 20200411, end: 20200515
  3. ALLOPURINOL. [Suspect]
     Active Substance: ALLOPURINOL
     Indication: PRODUCT USED FOR UNKNOWN INDICATION
     Dosage: 2 DF, QD
     Route: 048
     Dates: start: 20200318, end: 20200515
  4. LASILIX [FUROSEMIDE] [Concomitant]
     Active Substance: FUROSEMIDE
  5. LANSOYL [Concomitant]
     Active Substance: MINERAL OIL
  6. LOVENOX [Suspect]
     Active Substance: ENOXAPARIN SODIUM
     Indication: PROPHYLAXIS
     Dosage: 1 DF, QD
     Route: 042
     Dates: start: 20200430, end: 20200515
  7. DIFFU K [Concomitant]
     Active Substance: POTASSIUM CHLORIDE
  8. SPECIAFOLDINE [Concomitant]
     Active Substance: FOLIC ACID
  9. VANCOMYCINE SANDOZ [Suspect]
     Active Substance: VANCOMYCIN
     Indication: SEPSIS
     Dosage: 2 DF, QD
     Route: 042
     Dates: start: 20200422, end: 20200429
  10. CEFOXITINE PANPHARMA [Suspect]
     Active Substance: CEFOXITIN SODIUM
     Indication: SEPSIS
     Dosage: 3 G, QD
     Route: 042
     Dates: start: 20200429, end: 20200507
  11. GENTAMICIN SULFATE. [Suspect]
     Active Substance: GENTAMICIN SULFATE
     Indication: SEPSIS
     Dosage: 400 MG, QD
     Route: 042
     Dates: start: 20200423, end: 20200426
  12. AMOXICILLIN TRIHYDRATE/POTASSIUM CLAVULANATE [Suspect]
     Active Substance: AMOXICILLIN\CLAVULANATE POTASSIUM
     Indication: SEPSIS
     Dosage: 3 DF, QD
     Route: 042
     Dates: start: 20200415, end: 20200423
  13. PARACETAMOL [Suspect]
     Active Substance: ACETAMINOPHEN
     Indication: PAIN
     Dosage: 4 DF, QD
     Route: 042
     Dates: start: 20200410, end: 20200515
  14. CEFTRIAXONE SODIUM. [Suspect]
     Active Substance: CEFTRIAXONE SODIUM
     Indication: SEPSIS
     Dosage: 2 G, QD
     Route: 042
     Dates: start: 20200410, end: 20200415
  15. XANAX [Concomitant]
     Active Substance: ALPRAZOLAM
  16. LACTULOSE. [Concomitant]
     Active Substance: LACTULOSE
  17. TARDYFERON [Concomitant]
     Active Substance: FERROUS SULFATE

REACTIONS (1)
  - Drug reaction with eosinophilia and systemic symptoms [Recovered/Resolved]

NARRATIVE: CASE EVENT DATE: 20200510
